FAERS Safety Report 4620104-8 (Version None)
Quarter: 2005Q1

REPORT INFORMATION
  Report Type: 
  Country: None (occurrence: None)
  Receive Date: 20050323
  Receipt Date: 20050323
  Transmission Date: 20050727
  Serious: No
  Sender: FDA-Public Use
  Company Number: None

PATIENT
  Sex: Male
  Weight: 114.5 kg

DRUGS (5)
  1. PACLITAXEL [Suspect]
     Dosage: SEE IMAGE
     Dates: start: 20041117
  2. CISPLATIN [Suspect]
     Dosage: FOR 2 CYCLES FOLLOWED BY 96 HOUR CI PACLITAXEL AND WEEKLY CISPLATIN WITH CONCURRENT XRT
  3. HYDROCODONE BITARTRATE [Concomitant]
  4. LORAZEPAM [Concomitant]
  5. REGLAN [Concomitant]

REACTIONS (5)
  - CONFUSIONAL STATE [None]
  - DECREASED APPETITE [None]
  - GASTRIC ULCER [None]
  - NAUSEA [None]
  - VOMITING [None]
